FAERS Safety Report 7786588-1 (Version None)
Quarter: 2011Q3

REPORT INFORMATION
  Report Type: 
  Country: None (occurrence: None)
  Receive Date: 20110929
  Receipt Date: 20110921
  Transmission Date: 20111222
  Serious: Yes (Death, Hospitalization)
  Sender: FDA-Public Use
  Company Number: US-ELI_LILLY_AND_COMPANY-US201109006372

PATIENT

DRUGS (6)
  1. METFORMIN HCL [Concomitant]
     Dosage: UNK, BID
  2. NORMODYNE [Concomitant]
     Dosage: 100 MG, BID
  3. CYMBALTA [Suspect]
     Dosage: 30 MG, UNK
     Route: 064
  4. METFORMIN HCL [Concomitant]
     Dosage: UNK, BID
  5. CYMBALTA [Suspect]
     Dosage: 30 MG, UNK
     Route: 064
  6. NORMODYNE [Concomitant]
     Dosage: 100 MG, BID

REACTIONS (3)
  - DEATH NEONATAL [None]
  - PULMONARY HYPERTENSION [None]
  - MATERNAL EXPOSURE DURING PREGNANCY [None]
